FAERS Safety Report 9234322 (Version 1)
Quarter: 2013Q2

REPORT INFORMATION
  Report Type: Spontaneous
  Country: FR (occurrence: FR)
  Receive Date: 20130416
  Receipt Date: 20130416
  Transmission Date: 20140414
  Serious: Yes (Other)
  Sender: FDA-Public Use
  Company Number: FR-BAYER-2013-045428

PATIENT
  Age: 18 Year
  Sex: Female

DRUGS (1)
  1. QLAIRA [Suspect]
     Dosage: 1 DF, QD
     Route: 048
     Dates: start: 201012, end: 201201

REACTIONS (2)
  - Migraine with aura [Recovered/Resolved]
  - Paralysis [Recovered/Resolved]
